FAERS Safety Report 8024709-6 (Version None)
Quarter: 2012Q1

REPORT INFORMATION
  Report Type: 
  Country: None (occurrence: None)
  Receive Date: 20120105
  Receipt Date: 20111228
  Transmission Date: 20120608
  Serious: Yes (Hospitalization, Other)
  Sender: FDA-Public Use
  Company Number: US-CELGENEUS-163-20785-11091496

PATIENT
  Sex: Female
  Weight: 109.41 kg

DRUGS (12)
  1. THALOMID [Suspect]
     Indication: MULTIPLE MYELOMA
     Dosage: 100 MILLIGRAM
     Route: 048
     Dates: start: 20110422, end: 20110801
  2. COMPAZINE [Concomitant]
     Indication: NAUSEA
     Dosage: 10 MILLIGRAM
     Route: 048
  3. AMITRIPTYLINE HCL [Concomitant]
     Dosage: 2
     Route: 065
  4. VITAMIN B-12 [Concomitant]
     Indication: SUPPLEMENTATION THERAPY
     Route: 065
  5. SPIRIVA [Concomitant]
     Dosage: 1 PUFF
     Route: 055
  6. OMEPRAZOLE [Concomitant]
     Dosage: 40 MILLIGRAM
     Route: 048
  7. AMITRIPTYLINE HCL [Concomitant]
     Dosage: 1
     Route: 065
  8. VELCADE [Concomitant]
     Indication: MULTIPLE MYELOMA
     Dosage: 35 MILLIGRAM
     Route: 041
     Dates: start: 20110521, end: 20110801
  9. HUMALOG [Concomitant]
     Indication: DIABETES MELLITUS
     Dosage: SLIDING SCALE
     Route: 058
  10. ZOLOFT [Concomitant]
     Indication: DEPRESSION
     Dosage: 50 MILLIGRAM
     Route: 048
  11. VITAMIN D [Concomitant]
     Dosage: 50000 IU (INTERNATIONAL UNIT)
     Route: 048
  12. ZOFRAN [Concomitant]
     Indication: NAUSEA
     Dosage: 8 MILLIGRAM
     Route: 048

REACTIONS (2)
  - FALL [None]
  - NEUROPATHY PERIPHERAL [None]
